FAERS Safety Report 5805322-5 (Version None)
Quarter: 2008Q3

REPORT INFORMATION
  Report Type: 
  Country: None (occurrence: None)
  Receive Date: 20080709
  Receipt Date: 20080626
  Transmission Date: 20090109
  Serious: Yes (Hospitalization)
  Sender: FDA-Public Use
  Company Number: FR-ELI_LILLY_AND_COMPANY-FR200806005907

PATIENT
  Age: 78 Year
  Sex: Male

DRUGS (1)
  1. HUMALOG [Suspect]
     Indication: TYPE 1 DIABETES MELLITUS
     Dosage: 78 UL, DAILY (1/D)
     Route: 058

REACTIONS (1)
  - HYPOGLYCAEMIC COMA [None]
